FAERS Safety Report 16343593 (Version 10)
Quarter: 2025Q2

REPORT INFORMATION
  Report Type: Spontaneous
  Country: US (occurrence: US)
  Receive Date: 20190522
  Receipt Date: 20250515
  Transmission Date: 20250717
  Serious: No
  Sender: PFIZER
  Company Number: US-PFIZER INC-2016244018

PATIENT
  Age: 59 Year
  Sex: Male
  Weight: 117.9 kg

DRUGS (13)
  1. NORPACE [Suspect]
     Active Substance: DISOPYRAMIDE PHOSPHATE
     Indication: Hypertrophic cardiomyopathy
  2. NORPACE [Suspect]
     Active Substance: DISOPYRAMIDE PHOSPHATE
  3. NORPACE [Suspect]
     Active Substance: DISOPYRAMIDE PHOSPHATE
     Dosage: 150 MG, 2X/DAY (150MG CAPSULE TWICE DURING A 24 HOUR PERIOD)
  4. NORPACE [Suspect]
     Active Substance: DISOPYRAMIDE PHOSPHATE
  5. NORPACE [Suspect]
     Active Substance: DISOPYRAMIDE PHOSPHATE
     Dosage: 150 MG, 2X/DAY(150 MG WITH A 100 MG CAPSULE TWICE A DAY, EVERY 12 HOURS BY MOUTH)
     Route: 048
     Dates: start: 2015
  6. NORPACE [Suspect]
     Active Substance: DISOPYRAMIDE PHOSPHATE
     Dates: start: 2015
  7. NORPACE [Suspect]
     Active Substance: DISOPYRAMIDE PHOSPHATE
  8. NORPACE CR [Suspect]
     Active Substance: DISOPYRAMIDE PHOSPHATE
     Indication: Blood pressure abnormal
  9. NORPACE CR [Suspect]
     Active Substance: DISOPYRAMIDE PHOSPHATE
     Indication: Hypertrophic cardiomyopathy
     Dosage: 100 MG, 2X/DAY
     Route: 048
     Dates: start: 20170914
  10. NORPACE CR [Suspect]
     Active Substance: DISOPYRAMIDE PHOSPHATE
     Indication: Hypertension
     Dosage: 200 MG, 2X/DAY
  11. NORPACE CR [Suspect]
     Active Substance: DISOPYRAMIDE PHOSPHATE
     Dosage: 200 MG, 2X/DAY
     Route: 048
  12. NORPACE CR [Suspect]
     Active Substance: DISOPYRAMIDE PHOSPHATE
     Dosage: 150 MG, 2X/DAY
     Route: 048
     Dates: start: 20170914
  13. NORPACE CR [Suspect]
     Active Substance: DISOPYRAMIDE PHOSPHATE

REACTIONS (5)
  - Palpitations [Unknown]
  - Off label use [Unknown]
  - Drug effective for unapproved indication [Unknown]
  - Product dispensing error [Unknown]
  - Intentional product misuse [Unknown]

NARRATIVE: CASE EVENT DATE: 20190319
